FAERS Safety Report 9821270 (Version 2)
Quarter: 2014Q1

REPORT INFORMATION
  Report Type: Spontaneous
  Country: US (occurrence: US)
  Receive Date: 20140116
  Receipt Date: 20140116
  Transmission Date: 20141002
  Serious: Yes (Hospitalization)
  Sender: FDA-Public Use
  Company Number: US-GILEAD-2010-0033458

PATIENT
  Age: 56 Year
  Sex: Male

DRUGS (3)
  1. LETAIRIS [Suspect]
     Indication: PULMONARY HYPERTENSION
     Route: 048
     Dates: start: 20101013
  2. LETAIRIS [Suspect]
     Indication: DRUG ABUSE
  3. REMODULIN [Suspect]

REACTIONS (2)
  - Eye swelling [Recovered/Resolved]
  - Generalised erythema [Recovered/Resolved]
